FAERS Safety Report 5557058-6 (Version None)
Quarter: 2007Q4

REPORT INFORMATION
  Report Type: 
  Country: None (occurrence: None)
  Receive Date: 20071211
  Receipt Date: 20071123
  Transmission Date: 20080405
  Serious: Yes (Hospitalization)
  Sender: FDA-Public Use
  Company Number: DSA_30971_2007

PATIENT
  Age: 79 Year
  Sex: Female

DRUGS (13)
  1. MONO-TILDIEM (MONO-TILDIEM - DILTIAZEM  HYDROCHLORIDE) (NOT SPECIFIED) [Suspect]
     Indication: DRUG USE FOR UNKNOWN INDICATION
     Dosage: DF ORAL
     Route: 048
     Dates: start: 20060915, end: 20070923
  2. DANATROL (DANATROL-DANAZOL) [Suspect]
     Indication: DRUG USE FOR UNKNOWN INDICATION
     Dosage: ORAL
     Route: 048
     Dates: start: 20050414, end: 20070923
  3. STILNOX /00914901/ (STILNOX-ZOLPIDEM) [Suspect]
     Indication: DRUG USE FOR UNKNOWN INDICATION
     Dosage: ORAL
     Route: 048
     Dates: start: 20061001, end: 20070924
  4. PANTOPRAZOLE (INIPOMP-PANTOPRAZOLE) [Suspect]
     Indication: DRUG USE FOR UNKNOWN INDICATION
     Dosage: ORAL
     Route: 048
     Dates: start: 20070924
  5. DEXTROPROPOXYPHENE/ PARACETAMOL (DI-ANTALVIC-PARACETAMOL+DEXTROPROPOXY [Suspect]
     Indication: DRUG USE FOR UNKNOWN INDICATION
     Dosage: DF ORAL
     Route: 048
     Dates: end: 20070923
  6. LAROXYLO (LAROXYL-AMITRIPTYLINE HYDROCHLORIDE) [Suspect]
     Indication: DRUG USE FOR UNKNOWN INDICATION
     Dosage: 40 MG/ML SOLUTION ORAL
     Route: 048
     Dates: end: 20070923
  7. AMAREL (AMAREL-GILMEPIRIDE) [Suspect]
     Indication: DRUG USE FOR UNKNOWN INDICATION
     Dosage: DF ORAL
     Route: 048
     Dates: start: 20060915, end: 20070924
  8. DEROXAT (DEROXAT-PAROXETINE HYDROCHLORIDE) (NOT SPECIFIED) [Suspect]
     Indication: DRUG USE FOR UNKNOWN INDICATION
     Dosage: DF ORAL
     Route: 048
     Dates: end: 20070924
  9. DIFFU K (DIFFU K-POTASSIUM CHLORIDE) [Suspect]
     Indication: DRUG USE FOR UNKNOWN INDICATION
     Dosage: ORAL
     Route: 048
     Dates: end: 20070923
  10. NITRODERM [Concomitant]
  11. LEVOTHYROX [Concomitant]
  12. OGAST [Concomitant]
  13. LOVENOX [Concomitant]

REACTIONS (2)
  - CHOLELITHIASIS [None]
  - CHOLESTASIS [None]
